FAERS Safety Report 16792380 (Version 2)
Quarter: 2019Q3

REPORT INFORMATION
  Report Type: Spontaneous
  Country: DE (occurrence: DE)
  Receive Date: 20190910
  Receipt Date: 20190910
  Transmission Date: 20191005
  Serious: Yes (Other)
  Sender: FDA-Public Use
  Company Number: PHHY2019DE208526

PATIENT
  Age: 64 Year
  Sex: Male

DRUGS (1)
  1. CICLOSPORIN [Suspect]
     Active Substance: CYCLOSPORINE
     Indication: AUTOIMMUNE UVEITIS
     Dosage: 2.5 MG/KG, UNK
     Route: 065

REACTIONS (2)
  - IgA nephropathy [Unknown]
  - Renal failure [Unknown]
